FAERS Safety Report 5506999-4 (Version None)
Quarter: 2007Q4

REPORT INFORMATION
  Report Type: 
  Country: None (occurrence: None)
  Receive Date: 20071105
  Receipt Date: 20071015
  Transmission Date: 20080405
  Serious: No
  Sender: FDA-Public Use
  Company Number: US-BOEHRINGER INGELHEIM PHARMACEUTICALS, INC.-2007-BP-22778BP

PATIENT
  Age: 65 Year
  Sex: Male

DRUGS (4)
  1. MIRAPEX [Suspect]
     Indication: MUSCLE SPASMS
     Route: 048
     Dates: start: 20071001, end: 20071001
  2. MIRAPEX [Suspect]
     Indication: RESTLESS LEGS SYNDROME
  3. TOPROL-XL [Concomitant]
  4. ALTACE [Concomitant]

REACTIONS (1)
  - MUSCLE SPASMS [None]
